FAERS Safety Report 14909788 (Version 15)
Quarter: 2020Q1

REPORT INFORMATION
  Report Type: Spontaneous
  Country: CA (occurrence: CA)
  Receive Date: 20180517
  Receipt Date: 20200203
  Transmission Date: 20200409
  Serious: Yes (Other)
  Sender: FDA-Public Use
  Company Number: CA-CELLTRION INC.-2018CA019837

PATIENT

DRUGS (25)
  1. INFLECTRA [Suspect]
     Active Substance: INFLIXIMAB-DYYB
     Dosage: 800 MG, 0, 2, 6 WEEKS, THEN EVERY 8 WEEKS
     Route: 042
     Dates: start: 20180312, end: 20180312
  2. INFLECTRA [Suspect]
     Active Substance: INFLIXIMAB-DYYB
     Dosage: 900 MG EVERY 6 WEEKS
     Route: 042
     Dates: start: 20190930
  3. INFLECTRA [Suspect]
     Active Substance: INFLIXIMAB-DYYB
     Dosage: 900 MG, ADMINISTERED 8 WEEKS AFTER LAST INFUSION
     Route: 042
     Dates: start: 20191125
  4. CORTIFOAM [Concomitant]
     Active Substance: HYDROCORTISONE ACETATE
     Dosage: UNK
     Route: 065
  5. INFLECTRA [Suspect]
     Active Substance: INFLIXIMAB-DYYB
     Dosage: 800 MG, 0, 2, 6 WEEKS, THEN EVERY 8 WEEKS
     Route: 042
     Dates: start: 20180318, end: 20180318
  6. INFLECTRA [Suspect]
     Active Substance: INFLIXIMAB-DYYB
     Dosage: 800 MG, 0, 2, 6 WEEKS, THEN EVERY 8 WEEKS
     Route: 042
     Dates: start: 20180705
  7. INFLECTRA [Suspect]
     Active Substance: INFLIXIMAB-DYYB
     Dosage: 800 MG, 0, 2, 6 WEEKS, THEN EVERY 8 WEEKS
     Route: 042
     Dates: start: 20180828, end: 20180828
  8. INFLECTRA [Suspect]
     Active Substance: INFLIXIMAB-DYYB
     Dosage: 900 MG (10 MG/KG), EVERY 8 WEEKS
     Route: 042
     Dates: start: 20190108, end: 20190108
  9. INFLECTRA [Suspect]
     Active Substance: INFLIXIMAB-DYYB
     Dosage: 900 MG EVERY 6 WEEKS
     Route: 042
     Dates: start: 20190730
  10. CORTISONE [Concomitant]
     Active Substance: CORTISONE
     Dosage: UNK
  11. ADVIL [IBUPROFEN] [Concomitant]
     Active Substance: IBUPROFEN
     Dosage: UNK
     Route: 065
  12. INFLECTRA [Suspect]
     Active Substance: INFLIXIMAB-DYYB
     Dosage: 900 MG, EVERY 8 WEEKS
     Route: 042
     Dates: start: 20181029, end: 20181029
  13. INFLECTRA [Suspect]
     Active Substance: INFLIXIMAB-DYYB
     Dosage: 900 MG EVERY 6 WEEKS
     Route: 042
     Dates: start: 20190425
  14. INFLECTRA [Suspect]
     Active Substance: INFLIXIMAB-DYYB
     Dosage: 800 MG, 0, 2, 6 WEEKS, THEN EVERY 8 WEEKS
     Route: 042
     Dates: start: 20180703, end: 20180703
  15. INFLECTRA [Suspect]
     Active Substance: INFLIXIMAB-DYYB
     Dosage: 900 MG (10 MG/KG), EVERY 6 WEEKS
     Route: 042
     Dates: start: 20190315
  16. 5-ASA [Concomitant]
     Active Substance: MESALAMINE
     Dosage: UNK
     Route: 054
  17. CORTIMENT MMX [Concomitant]
     Active Substance: BUDESONIDE
     Dosage: UNK
     Route: 065
  18. SYNTHROID [Concomitant]
     Active Substance: LEVOTHYROXINE SODIUM
     Dosage: UNK
     Route: 065
  19. INFLECTRA [Suspect]
     Active Substance: INFLIXIMAB-DYYB
     Dosage: 900 MG, EVERY 8 WEEKS
     Route: 042
     Dates: start: 20181029, end: 20181029
  20. INFLECTRA [Suspect]
     Active Substance: INFLIXIMAB-DYYB
     Indication: COLITIS ULCERATIVE
     Dosage: 800 MG, 0, 2, 6 WEEKS, THEN EVERY 8 WEEKS
     Route: 042
     Dates: start: 20180131, end: 20180131
  21. INFLECTRA [Suspect]
     Active Substance: INFLIXIMAB-DYYB
     Dosage: 900 MG EVERY 6 WEEKS
     Route: 042
     Dates: start: 20190730
  22. INFLECTRA [Suspect]
     Active Substance: INFLIXIMAB-DYYB
     Dosage: 800 MG, 0, 2, 6 WEEKS, THEN EVERY 8 WEEKS
     Route: 042
     Dates: start: 20180213, end: 20180213
  23. INFLECTRA [Suspect]
     Active Substance: INFLIXIMAB-DYYB
     Dosage: 900 MG, ADMINISTERED 8 WEEKS AFTER LAST INFUSION
     Route: 042
     Dates: start: 20200106
  24. SALOFALK GR [Concomitant]
     Dosage: 2 G, 1X/DAY
     Route: 048
  25. INFLECTRA [Suspect]
     Active Substance: INFLIXIMAB-DYYB
     Dosage: 800 MG, 0, 2, 6 WEEKS, THEN EVERY 8 WEEKS
     Route: 042
     Dates: start: 20180508, end: 20180508

REACTIONS (16)
  - Weight increased [Unknown]
  - Erythema [Recovered/Resolved]
  - Intentional product use issue [Unknown]
  - Rectal haemorrhage [Recovered/Resolved]
  - Headache [Unknown]
  - Fear of injection [Not Recovered/Not Resolved]
  - Malaise [Not Recovered/Not Resolved]
  - Chest discomfort [Recovered/Resolved]
  - Rash [Recovered/Resolved]
  - Arthralgia [Recovered/Resolved]
  - Condition aggravated [Not Recovered/Not Resolved]
  - Hot flush [Recovered/Resolved]
  - Body temperature fluctuation [Unknown]
  - Inappropriate schedule of product administration [Unknown]
  - Off label use [Unknown]
  - Hypoaesthesia [Recovered/Resolved]

NARRATIVE: CASE EVENT DATE: 201805
